FAERS Safety Report 5789504-7 (Version None)
Quarter: 2008Q2

REPORT INFORMATION
  Report Type: 
  Country: None (occurrence: None)
  Receive Date: 20080626
  Receipt Date: 20080128
  Transmission Date: 20081010
  Serious: No
  Sender: FDA-Public Use
  Company Number: US-ASTRAZENECA-2008UW01926

PATIENT
  Age: 6 Year
  Sex: Male

DRUGS (5)
  1. PULMICORT RESPULES [Suspect]
     Indication: MULTIPLE ALLERGIES
     Route: 055
     Dates: start: 20080101
  2. PULMICORT RESPULES [Suspect]
     Route: 055
     Dates: start: 20071001, end: 20080101
  3. SINGULAIR [Concomitant]
  4. CLARITIN [Concomitant]
  5. CLARITHROMYCIN [Concomitant]

REACTIONS (1)
  - MOOD ALTERED [None]
